FAERS Safety Report 6261333-X (Version None)
Quarter: 2009Q3

REPORT INFORMATION
  Report Type: 
  Country: None (occurrence: None)
  Receive Date: 20090709
  Receipt Date: 20090630
  Transmission Date: 20100115
  Serious: Yes (Death, Other)
  Sender: FDA-Public Use
  Company Number: TR-ROCHE-641713

PATIENT
  Age: 57 Year
  Sex: Female

DRUGS (14)
  1. VALGANCICLOVIR HCL [Suspect]
     Dosage: POST TRANSPLANTATION DAY 3 AND AFTER
     Route: 048
  2. MYCOPHENOLATE MOFETIL [Suspect]
     Dosage: POST-TRANSPLANT DAY 1 AND AFTER
     Route: 065
  3. SULFAMETHOXAZOLE AND TRIMETHOPRIM [Suspect]
     Indication: DRUG USE FOR UNKNOWN INDICATION
     Route: 065
  4. ANTITHYMOCYTE GLOBULIN [Suspect]
     Indication: ANURIA
     Dosage: POST-TRANSPLANT DAY 3.
     Route: 065
  5. BASILIXIMAB [Suspect]
     Dosage: ON TRANSPLANTATION DAY
     Route: 065
  6. METHYLPREDNISOLONE [Suspect]
     Dosage: ON TRANSPLANTATION DAY
     Route: 065
  7. METHYLPREDNISOLONE [Suspect]
     Route: 065
  8. MYCOPHENOLATE SODIUM [Suspect]
     Dosage: DRUG NAME: MYCOPHENOLIC ACID SODIUM
     Route: 065
  9. PREDNISOLONE [Suspect]
     Route: 065
  10. FLUCONAZOLE [Suspect]
     Indication: DRUG USE FOR UNKNOWN INDICATION
     Route: 065
  11. VANCOMYCIN [Suspect]
     Indication: DRUG USE FOR UNKNOWN INDICATION
     Route: 065
  12. MEROPENEM [Suspect]
     Indication: DRUG USE FOR UNKNOWN INDICATION
     Route: 065
  13. G-CSF [Suspect]
     Indication: PANCYTOPENIA
     Dosage: UNIT REPORTED: MU/D
     Route: 065
  14. CASPOFUNGIN [Suspect]
     Route: 065

REACTIONS (12)
  - ANURIA [None]
  - BONE MARROW FAILURE [None]
  - DIARRHOEA [None]
  - FEBRILE NEUTROPENIA [None]
  - GENERAL PHYSICAL HEALTH DETERIORATION [None]
  - HAEMATOCHEZIA [None]
  - MULTI-ORGAN FAILURE [None]
  - NAUSEA [None]
  - OVERDOSE [None]
  - SEPSIS [None]
  - TRANSPLANT REJECTION [None]
  - VOMITING [None]
